FAERS Safety Report 7259691-2 (Version None)
Quarter: 2011Q1

REPORT INFORMATION
  Report Type: 
  Country: None (occurrence: None)
  Receive Date: 20110130
  Receipt Date: 20100908
  Transmission Date: 20110831
  Serious: No
  Sender: FDA-Public Use
  Company Number: US-ABBOTT-10P-163-0649013-00

PATIENT
  Sex: Male
  Weight: 39.498 kg

DRUGS (10)
  1. METHOTREXATE [Suspect]
     Indication: RHEUMATOID ARTHRITIS
     Dates: start: 20100301
  2. VITAMIN D [Concomitant]
     Indication: PRODUCT USED FOR UNKNOWN INDICATION
  3. METHOTREXATE [Concomitant]
     Indication: PRODUCT USED FOR UNKNOWN INDICATION
  4. HUMIRA [Suspect]
     Indication: JUVENILE ARTHRITIS
     Dates: start: 20100301
  5. ZYRTEC [Concomitant]
     Indication: HYPERSENSITIVITY
  6. NAPROXEN [Concomitant]
     Indication: RHEUMATOID ARTHRITIS
  7. FISH OIL [Concomitant]
     Indication: ROUTINE HEALTH MAINTENANCE
  8. MULTI-VITAMIN [Concomitant]
     Indication: PRODUCT USED FOR UNKNOWN INDICATION
  9. ZANTAC [Concomitant]
     Indication: ABDOMINAL DISCOMFORT
  10. MULTIVITAMIN [Concomitant]
     Indication: ROUTINE HEALTH MAINTENANCE

REACTIONS (4)
  - INJECTION SITE PRURITUS [None]
  - INJECTION SITE RASH [None]
  - INJECTION SITE PAIN [None]
  - STOMATITIS [None]
